FAERS Safety Report 14516913 (Version 2)
Quarter: 2018Q2

REPORT INFORMATION
  Report Type: Report from Study
  Country: CA (occurrence: CA)
  Receive Date: 20180212
  Receipt Date: 20180405
  Transmission Date: 20180711
  Serious: Yes (Other)
  Sender: FDA-Public Use
  Company Number: CA-BRISTOL-MYERS SQUIBB COMPANY-BMS-2017-041421

PATIENT
  Age: 74 Year
  Sex: Female

DRUGS (1)
  1. ABATACEPT [Suspect]
     Active Substance: ABATACEPT
     Indication: RHEUMATOID ARTHRITIS
     Dosage: 750 MG, Q4WK
     Route: 042
     Dates: start: 20121010, end: 20180125

REACTIONS (9)
  - Rhinorrhoea [Not Recovered/Not Resolved]
  - Blood pressure increased [Unknown]
  - Palpitations [Unknown]
  - Pain [Unknown]
  - Productive cough [Unknown]
  - Insomnia [Unknown]
  - Oropharyngeal pain [Recovered/Resolved]
  - Nerve compression [Unknown]
  - Dysphagia [Not Recovered/Not Resolved]

NARRATIVE: CASE EVENT DATE: 20170506
